FAERS Safety Report 20157657 (Version 2)
Quarter: 2021Q4

REPORT INFORMATION
  Report Type: Spontaneous
  Country: JP (occurrence: JP)
  Receive Date: 20211207
  Receipt Date: 20211222
  Transmission Date: 20220303
  Serious: Yes (Other)
  Sender: FDA-Public Use
  Company Number: JP-CELGENE-JPN-20211108205

PATIENT
  Sex: Male
  Weight: 2.675 kg

DRUGS (3)
  1. REVLIMID [Suspect]
     Active Substance: LENALIDOMIDE
     Indication: Maternal exposure during pregnancy
     Dosage: UNKNOWN
     Route: 064
     Dates: start: 201912
  2. MAGNESIUM OXIDE [Concomitant]
     Active Substance: MAGNESIUM OXIDE
     Indication: Maternal exposure during pregnancy
     Dosage: UNKNOWN
     Route: 064
     Dates: start: 20210420, end: 20211103
  3. NERIZA [Concomitant]
     Indication: Maternal exposure during pregnancy
     Dosage: UNKNOWN
     Route: 064
     Dates: start: 20210917, end: 20211102

REACTIONS (1)
  - Pyelocaliectasis [Unknown]

NARRATIVE: CASE EVENT DATE: 20210817
